FAERS Safety Report 4827958-0 (Version None)
Quarter: 2005Q4

REPORT INFORMATION
  Report Type: 
  Country: None (occurrence: None)
  Receive Date: 20051115
  Receipt Date: 20051104
  Transmission Date: 20060501
  Serious: Yes (Hospitalization)
  Sender: FDA-Public Use
  Company Number: US-BOEHRINGER INGELHEIM PHARMACEUTICALS, INC.-2005-BP-19252BP

PATIENT
  Sex: Male
  Weight: 75.8 kg

DRUGS (11)
  1. TIPRANAVIR / RITONAVIR CAPSULES [Suspect]
     Indication: HIV INFECTION
     Dosage: TPV/R 1000 / 400 MG
     Route: 048
     Dates: start: 20031022
  2. ENFUVIRTIDE [Concomitant]
     Indication: HIV INFECTION
     Route: 058
     Dates: start: 20021223
  3. TRUVADA [Concomitant]
     Indication: HIV INFECTION
     Route: 048
     Dates: start: 20050112
  4. TENOFOVIR [Concomitant]
     Indication: HIV INFECTION
     Route: 048
     Dates: start: 20030805
  5. CARDIZEM SR [Concomitant]
     Indication: HYPERTENSION
     Route: 048
     Dates: start: 20020306
  6. DAPSONE [Concomitant]
     Indication: ANTIBIOTIC PROPHYLAXIS
     Route: 048
     Dates: start: 19960131
  7. BIAXIN [Concomitant]
     Indication: MYCOBACTERIUM AVIUM COMPLEX INFECTION
     Route: 048
     Dates: start: 20050118
  8. PROTONIX [Concomitant]
     Indication: GASTROOESOPHAGEAL REFLUX DISEASE
     Route: 048
     Dates: start: 20030805
  9. VICODIN ES [Concomitant]
     Indication: INSOMNIA
     Dosage: 750/7.5 MG
     Route: 048
  10. MYCELEX [Concomitant]
     Indication: ORAL CANDIDIASIS
     Dosage: PRN
     Route: 048
     Dates: start: 20040122
  11. LOPID [Concomitant]
     Indication: HYPERTRIGLYCERIDAEMIA
     Route: 048
     Dates: start: 20050118

REACTIONS (2)
  - FEAR [None]
  - PROGRESSIVE MULTIFOCAL LEUKOENCEPHALOPATHY [None]
